FAERS Safety Report 7436572-2 (Version None)
Quarter: 2011Q2

REPORT INFORMATION
  Report Type: 
  Country: None (occurrence: None)
  Receive Date: 20110426
  Receipt Date: 20110418
  Transmission Date: 20111010
  Serious: No
  Sender: FDA-Public Use
  Company Number: US-BIOGENIDEC-2011BI015059

PATIENT
  Sex: Male

DRUGS (6)
  1. TYSABRI [Suspect]
     Indication: MULTIPLE SCLEROSIS
     Route: 042
     Dates: start: 20100514
  2. AVONEX [Concomitant]
     Indication: MULTIPLE SCLEROSIS
     Route: 030
     Dates: start: 20061101
  3. TYSABRI [Suspect]
     Route: 042
     Dates: start: 20061102, end: 20080123
  4. AVONEX [Concomitant]
     Route: 030
     Dates: start: 20071101
  5. AVONEX [Concomitant]
     Route: 030
  6. TYSABRI [Suspect]
     Route: 042
     Dates: start: 20080220, end: 20090710

REACTIONS (4)
  - MULTIPLE SCLEROSIS RELAPSE [None]
  - NASOPHARYNGITIS [None]
  - SINUS CONGESTION [None]
  - ASTHENIA [None]
